FAERS Safety Report 6452191-9 (Version None)
Quarter: 2009Q4

REPORT INFORMATION
  Report Type: 
  Country: None (occurrence: None)
  Receive Date: 20091123
  Receipt Date: 20091111
  Transmission Date: 20100525
  Serious: Yes (Other)
  Sender: FDA-Public Use
  Company Number: DE-PFIZER INC-2009258602

PATIENT
  Age: 3 Week
  Sex: Male
  Weight: 1.1 kg

DRUGS (9)
  1. PRO-EPANUTIN [Suspect]
     Indication: CONVULSION
     Dosage: 11.5 MG, 2X/DAY FOR UP TITRATION
     Route: 042
     Dates: start: 20090724, end: 20090724
  2. PRO-EPANUTIN [Interacting]
     Dosage: 3.5 MG, 2X/DAY MAINTENANCE DOSE
     Route: 042
     Dates: start: 20090725, end: 20090725
  3. PRO-EPANUTIN [Interacting]
     Dosage: 11.5 MG, 1X/DAY FOR INTERRUPTION OF SEIZURE
     Route: 042
     Dates: start: 20090726, end: 20090726
  4. DOPAMINE HYDROCHLORIDE [Interacting]
     Dosage: 6 UG/KG/MIN FOR 4 HOURS
     Dates: start: 20090726, end: 20090726
  5. DOBUTAMINE [Concomitant]
  6. LASIX [Concomitant]
     Dosage: UNK
  7. DIAZEPAM [Concomitant]
  8. VANCOMYCIN [Concomitant]
  9. MERONEM [Concomitant]

REACTIONS (5)
  - ATRIOVENTRICULAR BLOCK SECOND DEGREE [None]
  - BLOOD BILIRUBIN INCREASED [None]
  - BRADYARRHYTHMIA [None]
  - DRUG INTERACTION [None]
  - HYPOTENSION [None]
